FAERS Safety Report 13922154 (Version 2)
Quarter: 2018Q3

REPORT INFORMATION
  Report Type: Spontaneous
  Country: DK (occurrence: DK)
  Receive Date: 20170830
  Receipt Date: 20180801
  Transmission Date: 20181010
  Serious: Yes (Hospitalization)
  Sender: FDA-Public Use
  Company Number: DK-CELGENEUS-DNK-2016096477

PATIENT

DRUGS (3)
  1. ISTODAX [Suspect]
     Active Substance: ROMIDEPSIN
     Indication: HIV INFECTION
     Dosage: 5 MILLIGRAM/SQ. METER
     Route: 041
  2. RHUGM?CSF [Concomitant]
     Indication: HIV INFECTION
     Route: 065
  3. VACC?4X [Concomitant]
     Indication: HIV INFECTION
     Route: 065

REACTIONS (22)
  - Constipation [Unknown]
  - Feeling hot [Unknown]
  - Injection site erythema [Recovered/Resolved]
  - Injection site pruritus [Recovered/Resolved]
  - Influenza like illness [Unknown]
  - Dysgeusia [Unknown]
  - Gastrointestinal pain [Unknown]
  - Alcohol withdrawal syndrome [Unknown]
  - Nausea [Recovered/Resolved]
  - Alopecia [Not Recovered/Not Resolved]
  - Vomiting [Unknown]
  - Decreased appetite [Unknown]
  - Gastrointestinal sounds abnormal [Unknown]
  - Pyrexia [Unknown]
  - Diarrhoea [Unknown]
  - Headache [Unknown]
  - Parosmia [Unknown]
  - Palpitations [Unknown]
  - Fatigue [Recovered/Resolved]
  - Gastrooesophageal reflux disease [Unknown]
  - Malaise [Unknown]
  - Viral load increased [Unknown]
